FAERS Safety Report 8711022 (Version 5)
Quarter: 2014Q1

REPORT INFORMATION
  Report Type: Spontaneous
  Country: NL (occurrence: NL)
  Receive Date: 20120807
  Receipt Date: 20140102
  Transmission Date: 20141002
  Serious: Yes (Hospitalization)
  Sender: FDA-Public Use
  Company Number: NL-US-EMD SERONO, INC.-7096295

PATIENT
  Age: 55 Year
  Sex: Female
  Weight: 53 kg

DRUGS (8)
  1. REBIF [Suspect]
     Indication: MULTIPLE SCLEROSIS
     Route: 058
     Dates: start: 20080117
  2. TEMAZEPAM [Concomitant]
     Indication: INSOMNIA
     Route: 048
  3. MAGNESIUM HYDROXIDE [Concomitant]
     Indication: MUSCLE SPASMS
     Route: 048
  4. OXAZEPAM [Concomitant]
     Indication: ANXIETY
     Route: 048
  5. OXAZEPAM [Concomitant]
     Route: 048
  6. OXYBUTYNINE [Concomitant]
     Indication: INCONTINENCE
     Route: 048
  7. PANTOPRAZOLE [Concomitant]
     Indication: GASTRIC DISORDER
     Route: 048
  8. PARACETAMOL [Concomitant]
     Indication: PAIN
     Route: 048

REACTIONS (5)
  - Pancreatitis acute [Recovering/Resolving]
  - Cholelithiasis [Recovering/Resolving]
  - Injection site extravasation [Not Recovered/Not Resolved]
  - Injection site reaction [Recovered/Resolved]
  - White blood cell count decreased [Recovering/Resolving]
